FAERS Safety Report 6158069-2 (Version None)
Quarter: 2009Q2

REPORT INFORMATION
  Report Type: 
  Country: None (occurrence: None)
  Receive Date: 20090417
  Receipt Date: 20090407
  Transmission Date: 20091009
  Serious: Yes (Other)
  Sender: FDA-Public Use
  Company Number: GB-PFIZER INC-2009186997

PATIENT

DRUGS (1)
  1. DALACIN [Suspect]
     Indication: ACNE
     Route: 061

REACTIONS (3)
  - DIZZINESS [None]
  - DYSPNOEA [None]
  - SKIN DISCOLOURATION [None]
